FAERS Safety Report 9393006 (Version 2)
Quarter: 2013Q3

REPORT INFORMATION
  Report Type: Spontaneous
  Country: US (occurrence: US)
  Receive Date: 20130710
  Receipt Date: 20130723
  Transmission Date: 20140515
  Serious: No
  Sender: FDA-Public Use
  Company Number: US-B.I. PHARMACEUTICALS,INC./RIDGEFIELD-2013-BI-19683BP

PATIENT
  Age: 65 Year
  Sex: Female
  Weight: 57 kg

DRUGS (4)
  1. PRADAXA [Suspect]
     Indication: THROMBOSIS
     Dosage: 150 MG
     Route: 048
     Dates: start: 201210
  2. PRADAXA [Suspect]
     Indication: ATRIAL FIBRILLATION
  3. ASPIRIN [Concomitant]
  4. THYROID MEDICATION [Concomitant]

REACTIONS (3)
  - Haemoglobin decreased [Not Recovered/Not Resolved]
  - Off label use [Not Recovered/Not Resolved]
  - Blood urine present [Recovered/Resolved]
